FAERS Safety Report 6069248-7 (Version None)
Quarter: 2009Q1

REPORT INFORMATION
  Report Type: 
  Country: None (occurrence: None)
  Receive Date: 20090206
  Receipt Date: 20090204
  Transmission Date: 20090719
  Serious: Yes (Death)
  Sender: FDA-Public Use
  Company Number: PHHY2008JP29719

PATIENT

DRUGS (2)
  1. VOLTAREN [Suspect]
     Route: 048
  2. LOXONIN [Concomitant]

REACTIONS (3)
  - DEATH [None]
  - HYPERHIDROSIS [None]
  - MALIGNANT NEOPLASM PROGRESSION [None]
